FAERS Safety Report 9115703 (Version 1)
Quarter: 2013Q1

REPORT INFORMATION
  Report Type: Report from Study
  Country: FR (occurrence: FR)
  Receive Date: 20130225
  Receipt Date: 20130225
  Transmission Date: 20140127
  Serious: Yes (Hospitalization)
  Sender: FDA-Public Use
  Company Number: FR-BAXTER-2013BAX006494

PATIENT
  Age: 53 Year
  Sex: Male
  Weight: 75 kg

DRUGS (7)
  1. ENDOXAN 50 MG, COMPRIM? ENROB? [Suspect]
     Indication: CHRONIC LYMPHOCYTIC LEUKAEMIA
     Route: 048
     Dates: start: 20121219
  2. RITUXIMAB [Suspect]
     Indication: CHRONIC LYMPHOCYTIC LEUKAEMIA
     Route: 042
     Dates: start: 20121218
  3. FLUDARABINE [Suspect]
     Indication: CHRONIC LYMPHOCYTIC LEUKAEMIA
     Route: 048
     Dates: start: 20121219
  4. ALLOPURINOL [Suspect]
     Indication: HYPERURICAEMIA
     Route: 048
     Dates: start: 20121107
  5. LENOGRASTIM [Suspect]
     Indication: INFECTION PROPHYLAXIS
     Dosage: 34 MIU/ML
     Route: 058
     Dates: start: 20121228, end: 20130103
  6. BACTRIM [Suspect]
     Indication: PROPHYLAXIS
     Route: 048
     Dates: start: 20121218
  7. VALACICLOVIR [Suspect]
     Indication: PRODUCT USED FOR UNKNOWN INDICATION
     Route: 048
     Dates: start: 20121218

REACTIONS (3)
  - Generalised erythema [Not Recovered/Not Resolved]
  - Face oedema [Recovering/Resolving]
  - Eosinophilia [Recovering/Resolving]
